FAERS Safety Report 9966923 (Version 2)
Quarter: 2014Q1

REPORT INFORMATION
  Report Type: Report from Study
  Country: US (occurrence: US)
  Receive Date: 20140305
  Receipt Date: 20140305
  Transmission Date: 20141002
  Serious: Yes (Hospitalization, Other)
  Sender: FDA-Public Use
  Company Number: US-ABBVIE-13P-163-1082029-00

PATIENT
  Age: 63 Year
  Sex: Female

DRUGS (14)
  1. HUMIRA [Suspect]
     Indication: PSORIATIC ARTHROPATHY
     Dates: start: 2006, end: 200911
  2. HUMIRA [Suspect]
     Indication: PSORIASIS
     Dates: start: 20130321, end: 201305
  3. HUMIRA [Suspect]
     Dates: start: 201305
  4. MULTIVITAMIN [Concomitant]
     Indication: VITAMIN SUPPLEMENTATION
  5. CALCIUM D [Concomitant]
     Indication: MINERAL SUPPLEMENTATION
  6. VITAMIN D3 [Concomitant]
     Indication: VITAMIN SUPPLEMENTATION
  7. METFORMIN [Concomitant]
     Indication: DIABETES MELLITUS
  8. LEVEMIR [Concomitant]
     Indication: DIABETES MELLITUS
     Dosage: AT NIGHT
  9. NOVOLOG [Concomitant]
     Indication: DIABETES MELLITUS
     Dosage: SLIDING SCALE
  10. LEVOTHYROXINE SODIUM [Concomitant]
     Indication: HYPOTHYROIDISM
  11. LEVOTHYROXINE SODIUM [Concomitant]
     Dates: start: 201305
  12. AMBIEN [Concomitant]
     Indication: INSOMNIA
  13. XANAX [Concomitant]
     Indication: ANXIETY
  14. LIDODERM [Concomitant]
     Indication: PAIN

REACTIONS (17)
  - Myocardial infarction [Unknown]
  - Coronary arterial stent insertion [Unknown]
  - Arrhythmia [Unknown]
  - Blood cholesterol increased [Not Recovered/Not Resolved]
  - Hypertension [Unknown]
  - Psoriasis [Unknown]
  - Psoriatic arthropathy [Unknown]
  - Cough [Unknown]
  - Chills [Unknown]
  - Fatigue [Unknown]
  - Vomiting [Unknown]
  - Diarrhoea [Unknown]
  - Psoriasis [Unknown]
  - Tongue ulceration [Unknown]
  - Glossodynia [Unknown]
  - Cataract [Unknown]
  - Cataract [Unknown]
